FAERS Safety Report 6828092-0 (Version None)
Quarter: 2010Q3

REPORT INFORMATION
  Report Type: 
  Country: None (occurrence: None)
  Receive Date: 20100709
  Receipt Date: 20070131
  Transmission Date: 20110219
  Serious: No
  Sender: FDA-Public Use
  Company Number: US-PFIZER INC-2007009235

PATIENT
  Sex: Female
  Weight: 62.14 kg

DRUGS (6)
  1. CHANTIX [Suspect]
     Indication: SMOKING CESSATION THERAPY
     Dates: start: 20070101
  2. NORVASC [Concomitant]
  3. TIOTROPIUM BROMIDE [Concomitant]
  4. MICARDIS [Concomitant]
  5. ALBUTEROL [Concomitant]
  6. HYDROCHLOROTHIAZIDE [Concomitant]

REACTIONS (2)
  - COLD SWEAT [None]
  - NAUSEA [None]
